FAERS Safety Report 10309921 (Version 3)
Quarter: 2014Q3

REPORT INFORMATION
  Report Type: Spontaneous
  Country: US (occurrence: US)
  Receive Date: 20140717
  Receipt Date: 20140926
  Transmission Date: 20150326
  Serious: Yes (Hospitalization, Other)
  Sender: FDA-Public Use
  Company Number: US-AMGEN INC.-USASP2014053162

PATIENT
  Age: 38 Year
  Sex: Female
  Weight: 58.96 kg

DRUGS (3)
  1. ENBREL [Suspect]
     Active Substance: ETANERCEPT
     Indication: PSORIASIS
     Dosage: 50 MG, QWK
     Route: 058
     Dates: start: 2008
  2. METHYLDOPA. [Concomitant]
     Active Substance: METHYLDOPA
     Dosage: 250 UNK, UNK
  3. CLOMID [Concomitant]
     Active Substance: CLOMIPHENE CITRATE
     Dosage: UNK

REACTIONS (3)
  - Breech presentation [Recovered/Resolved]
  - Gestational diabetes [Unknown]
  - Influenza like illness [Unknown]

NARRATIVE: CASE EVENT DATE: 20110831
